FAERS Safety Report 10142642 (Version 1)
Quarter: 2014Q2

REPORT INFORMATION
  Report Type: Spontaneous
  Country: US (occurrence: None)
  Receive Date: 20140425
  Receipt Date: 20140425
  Transmission Date: 20141212
  Serious: Yes (Hospitalization)
  Sender: FDA-Public Use
  Company Number: AUR-APL-2014-04957

PATIENT
  Age: 65 Year
  Sex: Female

DRUGS (2)
  1. CLINDAMYCIN (CLINDAMYCIN) [Suspect]
     Indication: MALARIA
     Dates: start: 201008
  2. QUININE (QUININE) [Suspect]
     Indication: MALARIA
     Dates: start: 201008

REACTIONS (4)
  - Pyrexia [None]
  - Chills [None]
  - Malaria [None]
  - Plasmodium malariae infection [None]
